FAERS Safety Report 6031487-9 (Version None)
Quarter: 2009Q1

REPORT INFORMATION
  Report Type: 
  Country: None (occurrence: None)
  Receive Date: 20090108
  Receipt Date: 20090106
  Transmission Date: 20090719
  Serious: Yes (Hospitalization)
  Sender: FDA-Public Use
  Company Number: CH-PFIZER INC-2009151328

PATIENT

DRUGS (2)
  1. XANAX [Suspect]
     Dosage: 5 MG, 1X/DAY
     Route: 048
     Dates: start: 20081025, end: 20081025
  2. FLUOXETINE ^MEPHA^ [Suspect]
     Dosage: 60 MG, 1X/DAY
     Route: 048
     Dates: start: 20081025, end: 20081025

REACTIONS (2)
  - DRUG ABUSE [None]
  - SOMNOLENCE [None]
